FAERS Safety Report 23163042 (Version 1)
Quarter: 2023Q4

REPORT INFORMATION
  Report Type: Spontaneous
  Country: US (occurrence: US)
  Receive Date: 20231109
  Receipt Date: 20231109
  Transmission Date: 20240110
  Serious: Yes (Hospitalization, Other)
  Sender: FDA-Public Use
  Company Number: US-NOVAST LABORATORIES INC.-2023NOV000326

PATIENT
  Age: 43 Year
  Sex: Male

DRUGS (1)
  1. METFORMIN [Suspect]
     Active Substance: METFORMIN HYDROCHLORIDE
     Indication: Product used for unknown indication
     Dosage: 480000 MILLIGRAM
     Route: 048

REACTIONS (7)
  - Hyperkalaemia [Unknown]
  - Hypervolaemia [Recovering/Resolving]
  - Overdose [Unknown]
  - Suicide attempt [Unknown]
  - Acute kidney injury [Recovering/Resolving]
  - Hypoglycaemia [Unknown]
  - Lactic acidosis [Recovered/Resolved]
